FAERS Safety Report 11863284 (Version 1)
Quarter: 2015Q4

REPORT INFORMATION
  Report Type: Report from Study
  Country: IN (occurrence: IN)
  Receive Date: 20151223
  Receipt Date: 20151223
  Transmission Date: 20160305
  Serious: Yes (Death)
  Sender: FDA-Public Use
  Company Number: IN-ROCHE-1681258

PATIENT
  Age: 46 Year
  Sex: Male

DRUGS (8)
  1. CELLCEPT [Suspect]
     Active Substance: MYCOPHENOLATE MOFETIL\MYCOPHENOLATE MOFETIL HYDROCHLORIDE
     Indication: PROPHYLAXIS AGAINST TRANSPLANT REJECTION
     Dosage: 1000MG TWO TIMES A DAY
     Route: 048
     Dates: start: 20150613
  2. PROGRAF [Concomitant]
     Active Substance: TACROLIMUS\TACROLIMUS ANHYDROUS
     Route: 048
     Dates: start: 20150621
  3. INSULIN R [Concomitant]
     Dosage: 10 UNITS BEFORE BREAKFAST, 10 UNITS BEFORE LUNCH AND 10 UNITS BEFORE DINNER
     Route: 065
     Dates: start: 20150621
  4. LISPRO INSULIN [Concomitant]
     Active Substance: INSULIN LISPRO
     Dosage: 12 UNITS BEFORE BREAKFAST, 12 UNITS BEFORE LUNCH AND 10 UNITS BEFORE DINNER
     Route: 065
     Dates: start: 20150621
  5. WYSOLONE [Concomitant]
     Active Substance: PREDNISOLONE
     Route: 048
     Dates: start: 20150621
  6. LANTUS [Concomitant]
     Active Substance: INSULIN GLARGINE
     Dosage: 12 UNITS
     Route: 065
     Dates: start: 20150621
  7. DUPHALAC [Concomitant]
     Active Substance: LACTULOSE
     Dosage: WHENEVER NEEDED FOR CONSTIPATION
     Route: 048
  8. METOLAR XR [Concomitant]
     Active Substance: METOPROLOL SUCCINATE
     Route: 048
     Dates: start: 20150621

REACTIONS (1)
  - Death [Fatal]

NARRATIVE: CASE EVENT DATE: 20150829
